FAERS Safety Report 4969095-0 (Version None)
Quarter: 2006Q2

REPORT INFORMATION
  Report Type: 
  Country: None (occurrence: None)
  Receive Date: 20060411
  Receipt Date: 20050706
  Transmission Date: 20061013
  Serious: Yes (Hospitalization)
  Sender: FDA-Public Use
  Company Number: US-GLAXOSMITHKLINE-A0565150A

PATIENT
  Sex: Female

DRUGS (6)
  1. COMMIT [Suspect]
     Indication: DRUG USE FOR UNKNOWN INDICATION
     Dates: start: 20041101
  2. NEURONTIN [Concomitant]
     Dosage: 100MG FOUR TIMES PER DAY
  3. NORVASC [Concomitant]
     Dosage: 2.5MG TWICE PER DAY
  4. XANAX [Concomitant]
     Dosage: 4.25MG PER DAY
  5. MELLARIL [Concomitant]
     Dosage: 60MG PER DAY
  6. MAXZIDE [Concomitant]
     Dosage: 12.5MG PER DAY

REACTIONS (6)
  - ASTHMA [None]
  - BRONCHITIS [None]
  - DRUG WITHDRAWAL SYNDROME [None]
  - FEELING ABNORMAL [None]
  - SOMNOLENCE [None]
  - STOMACH DISCOMFORT [None]
